FAERS Safety Report 25608698 (Version 1)
Quarter: 2025Q3

REPORT INFORMATION
  Report Type: Spontaneous
  Country: US (occurrence: US)
  Receive Date: 20250726
  Receipt Date: 20250726
  Transmission Date: 20251020
  Serious: No
  Sender: SANOFI AVENTIS
  Company Number: US-SA-2025SA212321

PATIENT
  Age: 56 Year
  Sex: Male
  Weight: 82.993 kg

DRUGS (19)
  1. DUPIXENT [Suspect]
     Active Substance: DUPILUMAB
     Indication: Neurodermatitis
     Route: 058
     Dates: start: 2025, end: 2025
  2. DUPIXENT [Suspect]
     Active Substance: DUPILUMAB
     Route: 058
     Dates: start: 2025
  3. HUMALOG KWIKPEN [Concomitant]
     Active Substance: INSULIN LISPRO
  4. TRESIBA [Concomitant]
     Active Substance: INSULIN DEGLUDEC
  5. BUMETANIDE [Concomitant]
     Active Substance: BUMETANIDE
  6. LINZESS [Concomitant]
     Active Substance: LINACLOTIDE
  7. ATORVASTATIN CALCIUM [Concomitant]
     Active Substance: ATORVASTATIN CALCIUM
  8. CARVEDILOL [Concomitant]
     Active Substance: CARVEDILOL
  9. CLOPIDOGREL [Concomitant]
     Active Substance: CLOPIDOGREL BISULFATE
  10. SERTRALINE HYDROCHLORIDE [Concomitant]
     Active Substance: SERTRALINE HYDROCHLORIDE
  11. PANTOPRAZOLE SODIUM [Concomitant]
     Active Substance: PANTOPRAZOLE SODIUM
  12. REPATHA [Concomitant]
     Active Substance: EVOLOCUMAB
  13. IRBESARTAN [Concomitant]
     Active Substance: IRBESARTAN
  14. HYDROXYZINE HYDROCHLORIDE [Concomitant]
     Active Substance: HYDROXYZINE HYDROCHLORIDE
  15. VENTOLIN HFA [Concomitant]
     Active Substance: ALBUTEROL SULFATE
  16. ALBUTEROL SULFATE [Concomitant]
     Active Substance: ALBUTEROL SULFATE
  17. NICOTINE [Concomitant]
     Active Substance: NICOTINE
  18. ACETAMINOPHEN\HYDROCODONE [Concomitant]
     Active Substance: ACETAMINOPHEN\HYDROCODONE
  19. INSULIN LISPRO [Concomitant]
     Active Substance: INSULIN LISPRO

REACTIONS (1)
  - Skin ulcer [Unknown]

NARRATIVE: CASE EVENT DATE: 20250101
